FAERS Safety Report 7952346-8 (Version None)
Quarter: 2011Q4

REPORT INFORMATION
  Report Type: 
  Country: None (occurrence: None)
  Receive Date: 20111201
  Receipt Date: 20111123
  Transmission Date: 20120403
  Serious: Yes (Hospitalization, Other)
  Sender: FDA-Public Use
  Company Number: US-ACTELION-A-US2011-50777

PATIENT

DRUGS (1)
  1. TRACLEER [Suspect]
     Indication: PULMONARY ARTERIAL HYPERTENSION
     Dosage: UNK
     Route: 048
     Dates: start: 20100607

REACTIONS (8)
  - DYSPNOEA [None]
  - MOVEMENT DISORDER [None]
  - SWELLING [None]
  - GENERALISED OEDEMA [None]
  - CONDITION AGGRAVATED [None]
  - ATRIAL FIBRILLATION [None]
  - MALAISE [None]
  - FATIGUE [None]
